FAERS Safety Report 21330569 (Version 1)
Quarter: 2022Q3

REPORT INFORMATION
  Report Type: Spontaneous
  Country: US (occurrence: None)
  Receive Date: 20220913
  Receipt Date: 20220913
  Transmission Date: 20221027
  Serious: No
  Sender: FDA-Public Use
  Company Number: 2022A308374

PATIENT
  Sex: Female

DRUGS (1)
  1. CRESTOR [Suspect]
     Active Substance: ROSUVASTATIN CALCIUM
     Indication: Blood cholesterol increased
     Route: 048
     Dates: start: 2022, end: 2022

REACTIONS (5)
  - Myopathy [Unknown]
  - Sleep disorder [Unknown]
  - Pain [Unknown]
  - Hypothyroidism [Unknown]
  - Off label use [Unknown]
